FAERS Safety Report 7262473-9 (Version None)
Quarter: 2011Q1

REPORT INFORMATION
  Report Type: 
  Country: None (occurrence: None)
  Receive Date: 20110130
  Receipt Date: 20101209
  Transmission Date: 20110831
  Serious: No
  Sender: FDA-Public Use
  Company Number: US-ABBOTT-10P-163-0690465-00

PATIENT
  Age: 50 Year
  Sex: Female

DRUGS (8)
  1. TYLENOL-500 [Concomitant]
     Indication: PAIN
  2. PROZAC [Concomitant]
     Indication: ANXIETY
  3. FOLIC ACID [Concomitant]
     Indication: PRODUCT USED FOR UNKNOWN INDICATION
  4. ACIPHEX [Concomitant]
     Indication: DYSPEPSIA
  5. HUMIRA [Suspect]
     Indication: RHEUMATOID ARTHRITIS
  6. METHOTREXATE [Concomitant]
     Indication: PRODUCT USED FOR UNKNOWN INDICATION
  7. PREDNISONE [Concomitant]
     Indication: PRODUCT USED FOR UNKNOWN INDICATION
  8. PROZAC [Concomitant]
     Indication: DEPRESSION

REACTIONS (4)
  - NASAL CONGESTION [None]
  - OROPHARYNGEAL PAIN [None]
  - PYREXIA [None]
  - NASOPHARYNGITIS [None]
